FAERS Safety Report 4280647-6 (Version None)
Quarter: 2004Q1

REPORT INFORMATION
  Report Type: 
  Country: None (occurrence: None)
  Receive Date: 20040127
  Receipt Date: 20031202
  Transmission Date: 20041129
  Serious: Yes (Hospitalization)
  Sender: FDA-Public Use
  Company Number: 2003-DE-06175GD

PATIENT
  Age: 40 Year
  Sex: Female

DRUGS (3)
  1. NEVIRAPINE (NEVIRAPINE) [Suspect]
     Indication: HIV TEST POSITIVE
  2. AZIDOTHYMIDINE (ZIDOVUDINE) [Concomitant]
  3. LAMIVUDINE (LAMIVUDINE) [Concomitant]

REACTIONS (3)
  - HEPATIC FAILURE [None]
  - HEPATIC NECROSIS [None]
  - LIVER TRANSPLANT [None]
